FAERS Safety Report 8555420-0 (Version None)
Quarter: 2012Q3

REPORT INFORMATION
  Report Type: 
  Country: None (occurrence: None)
  Receive Date: 20120731
  Receipt Date: 20110825
  Transmission Date: 20120928
  Serious: Yes (Other)
  Sender: FDA-Public Use
  Company Number: US-ASTRAZENECA-2011SE12543

PATIENT
  Weight: 95.5 kg

DRUGS (10)
  1. OLANZAPINE [Concomitant]
     Route: 048
     Dates: start: 20041129
  2. SEROQUEL [Suspect]
     Route: 048
     Dates: start: 20041203
  3. MIRTAZAPINE [Concomitant]
     Route: 048
     Dates: start: 20040914
  4. PANTOPRAZOLE [Concomitant]
     Dates: start: 20100827
  5. CHLORDIAZEPOXIDE [Concomitant]
     Route: 048
     Dates: start: 20041129
  6. SERTRALINE HYDROCHLORIDE [Concomitant]
     Route: 048
     Dates: start: 20040914
  7. TRAZODONE HCL [Concomitant]
     Dosage: TAKE ONE TABLET BY MOUTH AT BEDTIME(WITH FOOD OR SNACK)MAY INCREASE TO 300MG (3 TABLETS) AS DIRECTED
     Route: 048
     Dates: start: 20060912
  8. SEROQUEL [Suspect]
     Route: 048
     Dates: start: 20060912
  9. BISACODYL [Concomitant]
     Dosage: TAKE FOUR TABLETS BY MOUTH ONE TIME
     Route: 048
     Dates: start: 20100827
  10. ARIPIPRAZOLE [Concomitant]
     Dates: start: 20100811

REACTIONS (3)
  - TYPE 2 DIABETES MELLITUS [None]
  - PANCREATITIS [None]
  - DIABETIC COMA [None]
